FAERS Safety Report 4640996-6 (Version None)
Quarter: 2005Q2

REPORT INFORMATION
  Report Type: 
  Country: None (occurrence: None)
  Receive Date: 20050421
  Receipt Date: 20050412
  Transmission Date: 20051028
  Serious: Yes (Other)
  Sender: FDA-Public Use
  Company Number: AU-BOEHRINGER INGELHEIM PHARMACEUTICALS, INC.-2005-BP-06029AU

PATIENT

DRUGS (3)
  1. MOBIC [Suspect]
     Route: 048
  2. CELEBREX [Suspect]
  3. VIOXX [Suspect]

REACTIONS (5)
  - ANGIOPLASTY [None]
  - CEREBROVASCULAR ACCIDENT [None]
  - MYOCARDIAL INFARCTION [None]
  - PULMONARY INFARCTION [None]
  - STENT PLACEMENT [None]
